FAERS Safety Report 26125095 (Version 1)
Quarter: 2025Q4

REPORT INFORMATION
  Report Type: Spontaneous
  Country: US (occurrence: US)
  Receive Date: 20251205
  Receipt Date: 20251205
  Transmission Date: 20260117
  Serious: No
  Sender: BRISTOL-MYERS SQUIBB COMPANY
  Company Number: US-BRISTOL-MYERS SQUIBB COMPANY-2025-163957

PATIENT
  Sex: Male

DRUGS (6)
  1. COBENFY [Suspect]
     Active Substance: TROSPIUM CHLORIDE\XANOMELINE
     Indication: Schizophrenia
     Dosage: DOSE WAS 125/30 MG
     Route: 048
     Dates: start: 2025
  2. ONDANSETRON [Concomitant]
     Active Substance: ONDANSETRON
     Indication: Product used for unknown indication
  3. XANAX [Concomitant]
     Active Substance: ALPRAZOLAM
     Indication: Product used for unknown indication
  4. LEXAPRO [Concomitant]
     Active Substance: ESCITALOPRAM OXALATE
     Indication: Product used for unknown indication
  5. AUSTEDO [Concomitant]
     Active Substance: DEUTETRABENAZINE
     Indication: Product used for unknown indication
  6. HALOPERIDOL [Concomitant]
     Active Substance: HALOPERIDOL
     Indication: Product used for unknown indication

REACTIONS (1)
  - Anger [Unknown]

NARRATIVE: CASE EVENT DATE: 20250101
